FAERS Safety Report 22397251 (Version 1)
Quarter: 2023Q2

REPORT INFORMATION
  Report Type: Spontaneous
  Country: ES (occurrence: ES)
  Receive Date: 20230602
  Receipt Date: 20230602
  Transmission Date: 20230722
  Serious: Yes (Hospitalization)
  Sender: FDA-Public Use
  Company Number: None

PATIENT
  Age: 79 Year
  Sex: Male

DRUGS (3)
  1. AMOXICILLIN\CLAVULANIC ACID [Suspect]
     Active Substance: AMOXICILLIN\CLAVULANIC ACID
     Indication: Septic shock
     Dosage: 1G/200MG DAY
     Route: 065
     Dates: start: 20221205, end: 20221221
  2. PANTOPRAZOLE [Suspect]
     Active Substance: PANTOPRAZOLE
     Indication: Prophylaxis
     Dosage: 2 DOSAGE FORMS DAILY; 1-0-1, PANTOPRAZOL (7275A), DURATION : 37 DAYS
     Route: 065
     Dates: start: 20221115, end: 20221221
  3. PIPERACILLIN SODIUM\TAZOBACTAM SODIUM [Suspect]
     Active Substance: PIPERACILLIN SODIUM\TAZOBACTAM SODIUM
     Indication: Septic shock
     Dosage: 4 DOSAGE FORMS DAILY; 1-1-1-1, STRENGTH : 4,000MG/500MG , DURATION : 18 DAYS
     Route: 065
     Dates: start: 20221118, end: 20221205

REACTIONS (1)
  - Acute kidney injury [Recovering/Resolving]

NARRATIVE: CASE EVENT DATE: 20221205
